FAERS Safety Report 8370276-7 (Version None)
Quarter: 2012Q2

REPORT INFORMATION
  Report Type: 
  Country: None (occurrence: None)
  Receive Date: 20120518
  Receipt Date: 20120319
  Transmission Date: 20120825
  Serious: No
  Sender: FDA-Public Use
  Company Number: US-ASTRAZENECA-2012SE18593

PATIENT
  Age: 80 Year
  Sex: Female

DRUGS (2)
  1. WARFARIN SODIUM [Concomitant]
  2. PRILOSEC OTC [Suspect]
     Dosage: ONCE/ SINGLE ADMINISTRATION
     Route: 048

REACTIONS (2)
  - SELF-MEDICATION [None]
  - DIARRHOEA [None]
